FAERS Safety Report 21934687 (Version 2)
Quarter: 2023Q1

REPORT INFORMATION
  Report Type: Spontaneous
  Country: US (occurrence: US)
  Receive Date: 20230201
  Receipt Date: 20230302
  Transmission Date: 20230417
  Serious: No
  Sender: FDA-Public Use
  Company Number: US-HETERO-HET2023US00179

PATIENT

DRUGS (1)
  1. PANTOPRAZOLE [Suspect]
     Active Substance: PANTOPRAZOLE
     Indication: Dyspepsia
     Dosage: UNK
     Route: 065

REACTIONS (5)
  - Abdominal discomfort [Unknown]
  - Product solubility abnormal [Unknown]
  - Wrong technique in product usage process [Unknown]
  - Vomiting [Unknown]
  - Drug ineffective [Unknown]
